FAERS Safety Report 5914444-X (Version None)
Quarter: 2008Q4

REPORT INFORMATION
  Report Type: 
  Country: None (occurrence: None)
  Receive Date: 20081007
  Receipt Date: 20080930
  Transmission Date: 20090506
  Serious: Yes (Hospitalization)
  Sender: FDA-Public Use
  Company Number: 2008SP019926

PATIENT
  Age: 53 Year
  Sex: Female
  Weight: 65.9 kg

DRUGS (4)
  1. TEMODAR [Suspect]
     Indication: GLIOBLASTOMA MULTIFORME
     Dosage: PO
     Route: 048
     Dates: start: 20080811, end: 20080903
  2. TEMODAR [Suspect]
     Indication: GLIOBLASTOMA MULTIFORME
     Dosage: PO
     Route: 048
     Dates: start: 20071210
  3. DECADRON [Concomitant]
  4. DEPAKOTE [Concomitant]

REACTIONS (3)
  - ASPIRATION [None]
  - CONFUSIONAL STATE [None]
  - PNEUMOCYSTIS JIROVECI PNEUMONIA [None]
